FAERS Safety Report 10572529 (Version 1)
Quarter: 2014Q4

REPORT INFORMATION
  Report Type: Spontaneous
  Country: GB (occurrence: GB)
  Receive Date: 20141110
  Receipt Date: 20141110
  Transmission Date: 20150529
  Serious: Yes (Disabling)
  Sender: FDA-Public Use
  Company Number: GB-009507513-1411GBR002226

PATIENT
  Age: 52 Year
  Sex: Male
  Weight: 63 kg

DRUGS (8)
  1. ACETAMINOPHEN. [Concomitant]
     Active Substance: ACETAMINOPHEN
     Indication: PAIN
     Dosage: 1G FOUR TIMES A DAY WHEN REQUIRED
     Route: 048
     Dates: start: 20060710
  2. DIHYDROCODEINE [Concomitant]
     Active Substance: DIHYDROCODEINE
     Indication: PAIN
     Dosage: 60 MG, 2 IN A DAY
     Route: 048
     Dates: start: 20061003
  3. FOSAMAX [Suspect]
     Active Substance: ALENDRONATE SODIUM
     Indication: PROPHYLAXIS
     Dosage: 70 MG, 1 IN A WEEK
     Route: 048
     Dates: start: 20040105, end: 20130722
  4. PREDNISOLONE. [Concomitant]
     Active Substance: PREDNISOLONE
     Indication: RHEUMATOID ARTHRITIS
     Dosage: 2 DOSAGE FORM, 1 A DAY
     Route: 048
     Dates: start: 20040105
  5. LEFLUNOMIDE. [Concomitant]
     Active Substance: LEFLUNOMIDE
     Indication: RHEUMATOID ARTHRITIS
     Dosage: 20 MILIGRAMS, 1 A DAY
     Route: 048
     Dates: start: 20060818
  6. CALCICHEW D3 [Concomitant]
     Active Substance: CALCIUM\CHOLECALCIFEROL
     Indication: PROPHYLAXIS
     Dosage: 1 DOSAGE FORM, 1 A DAY
     Route: 048
     Dates: start: 20080401
  7. BETAMETHASONE [Concomitant]
     Active Substance: BETAMETHASONE
     Indication: ECZEMA
     Dosage: UNK , 2 IN A DAY
     Route: 061
     Dates: start: 20050602
  8. CELECOXIB. [Concomitant]
     Active Substance: CELECOXIB
     Indication: PAIN
     Dosage: 200 MG, 1 IN A ADAY
     Route: 048
     Dates: start: 20040105

REACTIONS (3)
  - Femur fracture [Not Recovered/Not Resolved]
  - Osteonecrosis [Not Recovered/Not Resolved]
  - Pain in extremity [Not Recovered/Not Resolved]

NARRATIVE: CASE EVENT DATE: 2012
